FAERS Safety Report 9252363 (Version 3)
Quarter: 2013Q3

REPORT INFORMATION
  Report Type: Spontaneous
  Country: US (occurrence: US)
  Receive Date: 20130424
  Receipt Date: 20130806
  Transmission Date: 20140515
  Serious: Yes (Hospitalization)
  Sender: FDA-Public Use
  Company Number: US-INCYTE CORPORATION-2013IN000785

PATIENT
  Age: 62 Year
  Sex: Female
  Weight: 45.35 kg

DRUGS (3)
  1. JAKAFI [Suspect]
     Indication: MYELOFIBROSIS
     Dosage: 10 MG, BID
     Route: 048
     Dates: start: 20130312, end: 20130315
  2. DECITABINE [Suspect]
     Dosage: 5 MG, QD 5XQM
     Dates: end: 201303
  3. DECITABINE [Suspect]
     Dosage: 5 MG, QD 5XQM
     Dates: start: 201303

REACTIONS (3)
  - Cardiac failure acute [Recovering/Resolving]
  - Pulmonary oedema [Recovering/Resolving]
  - Cardiomyopathy [Recovering/Resolving]
